FAERS Safety Report 5232481-8 (Version None)
Quarter: 2007Q1

REPORT INFORMATION
  Report Type: 
  Country: None (occurrence: None)
  Receive Date: 20061204
  Receipt Date: 20051128
  Transmission Date: 20070707
  Serious: Yes (Hospitalization)
  Sender: FDA-Public Use
  Company Number: BDI-007752

PATIENT
  Age: 71 Year
  Sex: Male

DRUGS (3)
  1. ISOVUE-370 [Suspect]
     Indication: COMPUTERISED TOMOGRAM
     Dosage: 125 ML ONCE IV
     Route: 042
     Dates: start: 20051122, end: 20051122
  2. PREDNISOLONE [Concomitant]
  3. BENADRYL [Concomitant]

REACTIONS (1)
  - CONVULSION [None]
